FAERS Safety Report 6111099-9 (Version None)
Quarter: 2009Q1

REPORT INFORMATION
  Report Type: 
  Country: None (occurrence: None)
  Receive Date: 20090309
  Receipt Date: 20090309
  Transmission Date: 20090719
  Serious: Yes (Life-Threatening)
  Sender: FDA-Public Use
  Company Number: None

PATIENT
  Age: 51 Year
  Sex: Female
  Weight: 65.7716 kg

DRUGS (1)
  1. ADVAIR DISKUS 250/50 [Suspect]
     Indication: ASTHMA
     Dosage: 1 INHALATION TWICE PER DAY
     Dates: start: 20061001, end: 20090308

REACTIONS (4)
  - APHASIA [None]
  - COUGH [None]
  - DRUG EFFECT DELAYED [None]
  - THROAT TIGHTNESS [None]
